FAERS Safety Report 4571883-X (Version None)
Quarter: 2005Q1

REPORT INFORMATION
  Report Type: 
  Country: None (occurrence: None)
  Receive Date: 20050202
  Receipt Date: 20050121
  Transmission Date: 20050727
  Serious: Yes (Hospitalization, Disabling)
  Sender: FDA-Public Use
  Company Number: HQWYE651508OCT04

PATIENT
  Age: 23 Year
  Sex: Female
  Weight: 54.48 kg

DRUGS (18)
  1. EFFEXOR XR [Suspect]
     Indication: ANXIETY
     Dosage: 75 MG 1X PER 1 DAY, ORAL
     Route: 048
     Dates: start: 20030818, end: 20030925
  2. EFFEXOR XR [Suspect]
     Indication: FIBROMYALGIA
     Dosage: 75 MG 1X PER 1 DAY, ORAL
     Route: 048
     Dates: start: 20030818, end: 20030925
  3. PROAMATINE [Concomitant]
  4. FLORINEF [Concomitant]
  5. TOPAMAX [Concomitant]
  6. DIAZEPAM [Concomitant]
  7. BUTALBITAL, ACETAMINOPHEN + CAFFEINE (BUTALBITAL/CAFFEINE/PARACETAMOL) [Concomitant]
  8. POTASSIUM CHLORIDE [Concomitant]
  9. SINGULAIR [Concomitant]
  10. FLONASE [Concomitant]
  11. ALLEGRA [Concomitant]
  12. AFRIN (AMINOACETIC ACID/BENZALKONIUM CHLORIDE/OXYMETAZOLINE HYDROCHLOR [Concomitant]
  13. PHAZYME (DIASTASE/DIMETICONE, ACTIVATED/PANCREATIN/PEPSIN) [Concomitant]
  14. LOESTRIN (ETHINYLESTRADIOL/NORESTHISTERONE ACETATE) [Concomitant]
  15. AMBIEN [Concomitant]
  16. VIOCIDIN (HYDROCODONE BITARTRATE/PARACETAMOL) [Concomitant]
  17. MAXALT [Concomitant]
  18. ALLEGRA [Concomitant]

REACTIONS (43)
  - ACTIVITIES OF DAILY LIVING IMPAIRED [None]
  - ANION GAP DECREASED [None]
  - ANTINUCLEAR ANTIBODY POSITIVE [None]
  - APHASIA [None]
  - ASTHENIA [None]
  - BLOOD CALCIUM DECREASED [None]
  - BLOOD PRESSURE INCREASED [None]
  - BRUCELLOSIS [None]
  - COLD AGGLUTININS POSITIVE [None]
  - CONDITION AGGRAVATED [None]
  - CONVULSIVE THRESHOLD LOWERED [None]
  - COORDINATION ABNORMAL [None]
  - CREATINE PHOSPHOKINASE DECREASED [None]
  - CREATININE RENAL CLEARANCE INCREASED [None]
  - DEHYDRATION [None]
  - DEPRESSED LEVEL OF CONSCIOUSNESS [None]
  - DEPRESSION [None]
  - DIARRHOEA [None]
  - DIZZINESS [None]
  - DYSPNOEA [None]
  - DYSSTASIA [None]
  - ELECTROENCEPHALOGRAM ABNORMAL [None]
  - FALL [None]
  - FATIGUE [None]
  - FEELING HOT [None]
  - GASTRITIS [None]
  - GASTROENTERITIS [None]
  - HAEMATOCRIT DECREASED [None]
  - HYPERSOMNIA [None]
  - LOSS OF CONSCIOUSNESS [None]
  - MEMORY IMPAIRMENT [None]
  - MIGRAINE [None]
  - MUSCLE SPASMS [None]
  - NAUSEA [None]
  - ORTHOSTATIC HYPOTENSION [None]
  - PALPITATIONS [None]
  - PANIC ATTACK [None]
  - PLATELET COUNT INCREASED [None]
  - PROCEDURAL COMPLICATION [None]
  - SCOLIOSIS [None]
  - SINUS TACHYCARDIA [None]
  - SYNCOPE [None]
  - THYROIDITIS ACUTE [None]
